FAERS Safety Report 4804080-0 (Version None)
Quarter: 2005Q4

REPORT INFORMATION
  Report Type: 
  Country: None (occurrence: None)
  Receive Date: 20051020
  Receipt Date: 20050815
  Transmission Date: 20060501
  Serious: Yes (Life-Threatening, Hospitalization)
  Sender: FDA-Public Use
  Company Number: AU-BOEHRINGER INGELHEIM PHARMACEUTICALS, INC.-2005-BP-13943AU

PATIENT
  Sex: Female

DRUGS (1)
  1. MOBIC [Suspect]
     Route: 048

REACTIONS (4)
  - CARDIAC ARREST [None]
  - FAECAL INCONTINENCE [None]
  - GASTROINTESTINAL HAEMORRHAGE [None]
  - RESPIRATORY ARREST [None]
